FAERS Safety Report 9669968 (Version 1)
Quarter: 2013Q4

REPORT INFORMATION
  Report Type: Spontaneous
  Country: US (occurrence: US)
  Receive Date: 20131105
  Receipt Date: 20131105
  Transmission Date: 20140711
  Serious: Yes (Hospitalization, Other)
  Sender: FDA-Public Use
  Company Number: US-ACTAVIS-2013-19710

PATIENT
  Sex: Female
  Weight: 88 kg

DRUGS (3)
  1. GELNIQUE 3% (WATSON LABORATORIES) [Suspect]
     Indication: HYPERTONIC BLADDER
     Dosage: UNK, UNKNOWN
     Route: 065
     Dates: start: 20131021, end: 20131021
  2. VERAPAMIL [Concomitant]
     Indication: PRODUCT USED FOR UNKNOWN INDICATION
     Dosage: 180 MG, BID
     Route: 048
  3. CRESTOR [Concomitant]
     Indication: PRODUCT USED FOR UNKNOWN INDICATION
     Dosage: 10 MG, DAILY
     Route: 048

REACTIONS (2)
  - Hypertension [Recovered/Resolved]
  - Feeling hot [Recovered/Resolved]
